FAERS Safety Report 12158192 (Version 1)
Quarter: 2016Q1

REPORT INFORMATION
  Report Type: Spontaneous
  Country: US (occurrence: None)
  Receive Date: 20160307
  Receipt Date: 20160307
  Transmission Date: 20160526
  Serious: Yes (Life-Threatening)
  Sender: FDA-Public Use
  Company Number: None

PATIENT
  Age: 52 Year
  Sex: Female
  Weight: 68.04 kg

DRUGS (5)
  1. BENADRYL [Suspect]
     Active Substance: DIPHENHYDRAMINE HYDROCHLORIDE
     Indication: PRODUCT USED FOR UNKNOWN INDICATION
  2. VEGAN VITAMINS [Concomitant]
  3. HOMEMADE COUGH SYRUP (HONEY, LEMON, SPLASH OF VODKA) [Concomitant]
  4. EPIPEN [Concomitant]
     Active Substance: EPINEPHRINE
  5. ESSENTIAL OILS. [Concomitant]
     Active Substance: ESSENTIAL OILS

REACTIONS (14)
  - Facial paralysis [None]
  - Dyspnoea [None]
  - Pain [None]
  - Diarrhoea [None]
  - Feeling abnormal [None]
  - Vomiting [None]
  - Anaphylactic shock [None]
  - Oxygen saturation decreased [None]
  - Urticaria [None]
  - Confusional state [None]
  - Product label issue [None]
  - Product formulation issue [None]
  - Headache [None]
  - Syncope [None]

NARRATIVE: CASE EVENT DATE: 20160211
